FAERS Safety Report 22025124 (Version 1)
Quarter: 2023Q1

REPORT INFORMATION
  Report Type: Spontaneous
  Country: FR (occurrence: None)
  Receive Date: 20230223
  Receipt Date: 20230223
  Transmission Date: 20230418
  Serious: Yes (Hospitalization)
  Sender: FDA-Public Use
  Company Number: FR-ROCHE-3290438

PATIENT
  Age: 75 Year
  Sex: Male

DRUGS (1)
  1. XELODA [Suspect]
     Active Substance: CAPECITABINE
     Indication: Colon cancer
     Route: 048
     Dates: start: 202003, end: 202009

REACTIONS (2)
  - Interstitial lung disease [Recovering/Resolving]
  - Pulmonary granuloma [Recovering/Resolving]

NARRATIVE: CASE EVENT DATE: 20220301
